FAERS Safety Report 8474195-7 (Version None)
Quarter: 2012Q2

REPORT INFORMATION
  Report Type: 
  Country: None (occurrence: None)
  Receive Date: 20120628
  Receipt Date: 20120622
  Transmission Date: 20120825
  Serious: Yes (Other)
  Sender: FDA-Public Use
  Company Number: US-PFIZER INC-2012132744

PATIENT
  Sex: Female
  Weight: 58.957 kg

DRUGS (7)
  1. ADVAIR DISKUS 100/50 [Concomitant]
     Indication: EMPHYSEMA
     Dosage: UNK, 2X/DAY
  2. PREDNISONE [Suspect]
     Dosage: 40 MG, UNK
     Dates: start: 20120601
  3. PREDNISONE [Suspect]
     Dosage: 50 MG, UNK
     Dates: start: 20120531
  4. COMBIVENT [Concomitant]
     Indication: EMPHYSEMA
     Dosage: UNK, EVERY 4 HRS
  5. PREDNISONE [Suspect]
     Indication: PNEUMONITIS
     Dosage: UNK
  6. REVATIO [Suspect]
     Indication: PULMONARY HYPERTENSION
     Dosage: 20 MG, 3X/DAY
     Dates: start: 20120101
  7. SPIRIVA [Concomitant]
     Indication: EMPHYSEMA
     Dosage: UNK, DAILY IN THE MORNING

REACTIONS (8)
  - HOT FLUSH [None]
  - FEELING ABNORMAL [None]
  - HEADACHE [None]
  - JOINT SWELLING [None]
  - DYSPNOEA [None]
  - DIZZINESS [None]
  - SOMNOLENCE [None]
  - INFLUENZA [None]
